FAERS Safety Report 20904432 (Version 6)
Quarter: 2022Q4

REPORT INFORMATION
  Report Type: Report from Study
  Country: US (occurrence: US)
  Receive Date: 20220602
  Receipt Date: 20221020
  Transmission Date: 20230113
  Serious: Yes (Other)
  Sender: FDA-Public Use
  Company Number: US-ABBVIE-22K-163-4415836-00

PATIENT
  Age: 80 Year
  Sex: Male
  Weight: 75.296 kg

DRUGS (19)
  1. HUMIRA [Suspect]
     Active Substance: ADALIMUMAB
     Indication: Asthenia
     Route: 058
     Dates: start: 201801, end: 20220330
  2. HUMIRA [Suspect]
     Active Substance: ADALIMUMAB
     Indication: Vasculitis
     Dosage: 40MG/0.4ML
     Dates: start: 20211027, end: 20220330
  3. HUMIRA [Suspect]
     Active Substance: ADALIMUMAB
     Indication: Rheumatoid arthritis
     Dosage: 40MG/0.4ML
     Dates: start: 20210709, end: 20211026
  4. HUMIRA [Suspect]
     Active Substance: ADALIMUMAB
     Indication: Malaise
     Dosage: 40MG/0.4ML
     Dates: end: 2021
  5. HUMIRA [Suspect]
     Active Substance: ADALIMUMAB
     Indication: Dyspnoea
  6. MODERNA COVID-19 VACCINE [Concomitant]
     Active Substance: ELASOMERAN
     Indication: COVID-19 immunisation
     Dosage: FIRST DOSE
     Route: 030
     Dates: start: 20210222, end: 20210222
  7. MODERNA COVID-19 VACCINE [Concomitant]
     Active Substance: ELASOMERAN
     Indication: COVID-19 immunisation
     Dosage: SECOND DOSE
     Route: 030
     Dates: start: 20210326, end: 20210326
  8. MODERNA COVID-19 VACCINE [Concomitant]
     Active Substance: ELASOMERAN
     Indication: COVID-19 immunisation
     Dosage: THIRD DOSE
     Route: 030
     Dates: start: 202110, end: 202110
  9. MODERNA COVID-19 VACCINE [Concomitant]
     Active Substance: ELASOMERAN
     Indication: COVID-19 immunisation
     Dosage: FOURTH DOSE
     Route: 030
     Dates: start: 20220505, end: 20220505
  10. PREDNISONE [Concomitant]
     Active Substance: PREDNISONE
     Indication: Pain
  11. DOXYCYCLINE [Concomitant]
     Active Substance: DOXYCYCLINE
     Indication: Product used for unknown indication
  12. Tyelenol [Concomitant]
     Indication: Product used for unknown indication
  13. AZELASTINE HYDROCHLORIDE [Concomitant]
     Active Substance: AZELASTINE HYDROCHLORIDE
     Indication: Product used for unknown indication
  14. LEFLUNOMIDE [Concomitant]
     Active Substance: LEFLUNOMIDE
     Indication: Product used for unknown indication
  15. ZYRTEC [Concomitant]
     Active Substance: CETIRIZINE HYDROCHLORIDE
     Indication: Product used for unknown indication
  16. ROSUVASTATIN [Concomitant]
     Active Substance: ROSUVASTATIN
     Indication: Product used for unknown indication
  17. Plaquenil Hydroxychloroquine [Concomitant]
     Indication: Product used for unknown indication
  18. ASPIRIN [Concomitant]
     Active Substance: ASPIRIN
     Indication: Product used for unknown indication
  19. LANSOPRAZOLE [Concomitant]
     Active Substance: LANSOPRAZOLE
     Indication: Product used for unknown indication

REACTIONS (8)
  - Lymphadenopathy [Recovered/Resolved]
  - Lymphoma [Recovering/Resolving]
  - Lymphatic disorder [Unknown]
  - Lymphadenopathy [Recovered/Resolved]
  - B-cell lymphoma [Recovered/Resolved]
  - Cardiac disorder [Unknown]
  - Non-Hodgkin^s lymphoma [Unknown]
  - Gait inability [Unknown]

NARRATIVE: CASE EVENT DATE: 20211115
